FAERS Safety Report 5386228-5 (Version None)
Quarter: 2007Q3

REPORT INFORMATION
  Report Type: 
  Country: None (occurrence: None)
  Receive Date: 20070713
  Receipt Date: 20070709
  Transmission Date: 20080115
  Serious: Yes (Other)
  Sender: FDA-Public Use
  Company Number: PHEH2007US01730

PATIENT
  Age: 79 Year
  Sex: Female

DRUGS (2)
  1. FEMARA [Suspect]
     Indication: BREAST CANCER
     Dosage: 2.5 MG, QD
     Route: 048
     Dates: start: 20060101
  2. FLEXERIL [Suspect]
     Indication: INJURY
     Dates: start: 20070122, end: 20070122

REACTIONS (6)
  - BONE PAIN [None]
  - CONVULSION [None]
  - DRUG INTERACTION [None]
  - DYSKINESIA [None]
  - HOT FLUSH [None]
  - INJURY [None]
